FAERS Safety Report 9081825 (Version 1)
Quarter: 2013Q1

REPORT INFORMATION
  Report Type: Report from Study
  Country: US (occurrence: US)
  Receive Date: 20130130
  Receipt Date: 20130130
  Transmission Date: 20140127
  Serious: No
  Sender: FDA-Public Use
  Company Number: US-ABBOTT-12P-163-0959421-00

PATIENT
  Age: 60 Year
  Sex: Female

DRUGS (17)
  1. HUMIRA 40 MG/0.8 ML PEN [Suspect]
     Indication: PSORIASIS
     Dates: start: 20120531
  2. HYDROCORTISONE [Concomitant]
     Indication: BLOOD CORTISOL ABNORMAL
     Dosage: 10MG DAILY
  3. DOXEPIN HCL [Concomitant]
     Indication: INSOMNIA
     Dosage: 2 TABLETS 10MG AT BEDTIME
  4. ZANAFLEX [Concomitant]
     Indication: MUSCLE SPASMS
     Dosage: 1 TABLET
  5. VITAMIN D [Concomitant]
     Indication: VITAMIN D DEFICIENCY
     Dosage: 50,000 UNITS ONCE A WEEK
  6. CORGARD [Concomitant]
     Indication: POSTURAL ORTHOSTATIC TACHYCARDIA SYNDROME
     Dosage: 30MG ONCE A DAY
  7. METHOTREXATE [Concomitant]
     Indication: PSORIATIC ARTHROPATHY
     Dosage: 2.5MG 6 TABLETS ONCE A WEEK
  8. VICODIN [Concomitant]
     Indication: FIBROMYALGIA
     Dosage: 10/325 1 TABLET EVERY 6 HOURS
  9. XANAX [Concomitant]
     Indication: ANXIETY
  10. ZOFRAN [Concomitant]
     Indication: NAUSEA
  11. EFFEXOR XR [Concomitant]
     Indication: DEPRESSION
     Dosage: 75MG ONCE A DAY
  12. PROTONIX [Concomitant]
     Indication: GASTROOESOPHAGEAL REFLUX DISEASE
     Dosage: 40MG ONCE A DAY
  13. BENTYL [Concomitant]
     Indication: DIARRHOEA
  14. FENTANYL [Concomitant]
     Indication: PRODUCT USED FOR UNKNOWN INDICATION
     Dosage: 12MCG AND 25MCG PATCHES CHANGED EVERY 3 DAYS
  15. MIRALAX [Concomitant]
     Indication: CONSTIPATION
  16. BONIVA [Concomitant]
     Indication: PRODUCT USED FOR UNKNOWN INDICATION
     Dosage: 3MG/3ML IV INFUSION ONCE EVERY 3 MONTHS
  17. ASPIRIN [Concomitant]
     Indication: PRODUCT USED FOR UNKNOWN INDICATION
     Dosage: 81MG DAILY

REACTIONS (3)
  - Diarrhoea [Not Recovered/Not Resolved]
  - Abdominal pain [Not Recovered/Not Resolved]
  - Diarrhoea [Not Recovered/Not Resolved]
